FAERS Safety Report 4288659-3 (Version None)
Quarter: 2004Q1

REPORT INFORMATION
  Report Type: 
  Country: None (occurrence: None)
  Receive Date: 20040205
  Receipt Date: 20040121
  Transmission Date: 20041129
  Serious: No
  Sender: FDA-Public Use
  Company Number: 2004GB00181

PATIENT
  Age: 45 Year
  Sex: Female

DRUGS (2)
  1. NEXIUM [Suspect]
     Indication: OESOPHAGITIS
     Dates: start: 20030901
  2. NORIDAY [Concomitant]

REACTIONS (3)
  - HEPATITIS [None]
  - LIVER FUNCTION TEST ABNORMAL [None]
  - PRURITUS [None]
